FAERS Safety Report 6463195-4 (Version None)
Quarter: 2009Q4

REPORT INFORMATION
  Report Type: 
  Country: None (occurrence: None)
  Receive Date: 20091130
  Receipt Date: 20091113
  Transmission Date: 20100525
  Serious: No
  Sender: FDA-Public Use
  Company Number: US-B.I. PHARMACEUTICALS,INC./RIDGEFIELD-2009-BP-01048BP

PATIENT
  Age: 74 Year
  Sex: Female

DRUGS (19)
  1. CATAPRES-TTS-1 [Suspect]
     Indication: HYPERTENSION
     Route: 061
     Dates: start: 20081001, end: 20081001
  2. INSULIN [Concomitant]
     Indication: DIABETES MELLITUS
  3. SINGULAIR [Concomitant]
     Indication: HYPERSENSITIVITY
  4. PLAVIX [Concomitant]
     Indication: ARTERIAL DISORDER
  5. ALLEGRA [Concomitant]
     Indication: HYPERSENSITIVITY
  6. PROTONIX [Concomitant]
     Indication: GASTRIC DISORDER
  7. LASIX [Concomitant]
     Indication: SWELLING
  8. LASIX [Concomitant]
     Indication: FLUID RETENTION
  9. ADVAIR DISKUS 100/50 [Concomitant]
     Indication: HYPERSENSITIVITY
  10. DARVOCET [Concomitant]
     Indication: MUSCULOSKELETAL PAIN
  11. LISINOPRIL [Concomitant]
  12. ALLEGORA [Concomitant]
  13. MIRAPEX [Concomitant]
  14. NASONEX [Concomitant]
  15. ALPHAGAN [Concomitant]
  16. TRAVATAN [Concomitant]
  17. NOVOLOG [Concomitant]
  18. LANTUS [Concomitant]
  19. TRAMADOL HCL [Concomitant]

REACTIONS (5)
  - APPLICATION SITE BURN [None]
  - APPLICATION SITE ERYTHEMA [None]
  - APPLICATION SITE SCAB [None]
  - BLISTER [None]
  - SCAR [None]
